FAERS Safety Report 11871875 (Version 4)
Quarter: 2016Q1

REPORT INFORMATION
  Report Type: Spontaneous
  Country: JP (occurrence: JP)
  Receive Date: 20151228
  Receipt Date: 20160301
  Transmission Date: 20160526
  Serious: Yes (Disabling, Other)
  Sender: FDA-Public Use
  Company Number: JP-GLAXOSMITHKLINE-JP2015JPN180222

PATIENT
  Age: 18 Year
  Sex: Female

DRUGS (3)
  1. CLINDAMYCIN [Concomitant]
     Active Substance: CLINDAMYCIN\CLINDAMYCIN PHOSPHATE
     Indication: ACNE
     Dosage: UNK, BID
     Dates: start: 20151116
  2. DUAC GEL [Suspect]
     Active Substance: BENZOYL PEROXIDE\CLINDAMYCIN PHOSPHATE
     Indication: ACNE
     Dosage: 0.6 G, QD
     Route: 050
     Dates: start: 20151102, end: 20151116
  3. EKSALB [Concomitant]
     Indication: ACNE
     Dosage: UNK, QD
     Dates: start: 20151120

REACTIONS (7)
  - Pruritus [Unknown]
  - Application site erosion [Recovering/Resolving]
  - Dermatitis contact [Recovered/Resolved]
  - Pigmentation disorder [Recovering/Resolving]
  - Skin exfoliation [Unknown]
  - Eczema weeping [Unknown]
  - Application site erythema [Unknown]

NARRATIVE: CASE EVENT DATE: 201511
